FAERS Safety Report 6496574-X (Version None)
Quarter: 2009Q4

REPORT INFORMATION
  Report Type: 
  Country: None (occurrence: None)
  Receive Date: 20091210
  Receipt Date: 20091030
  Transmission Date: 20100525
  Serious: Yes (Hospitalization)
  Sender: FDA-Public Use
  Company Number: 1000010625

PATIENT
  Sex: Male

DRUGS (2)
  1. ESCITALOPRAM [Suspect]
  2. HYPNOTIC (NOS) [Suspect]

REACTIONS (3)
  - DRUG INTERACTION [None]
  - EXTRAPYRAMIDAL DISORDER [None]
  - PYREXIA [None]
